FAERS Safety Report 21951172 (Version 1)
Quarter: 2023Q1

REPORT INFORMATION
  Report Type: Spontaneous
  Country: GB (occurrence: GB)
  Receive Date: 20230203
  Receipt Date: 20230203
  Transmission Date: 20230417
  Serious: Yes (Other)
  Sender: FDA-Public Use
  Company Number: GB-ANIPHARMA-2023-UK-000024

PATIENT
  Age: 78 Year
  Sex: Male

DRUGS (1)
  1. CASODEX [Suspect]
     Active Substance: BICALUTAMIDE
     Indication: Prostate cancer
     Dosage: 150 MG UNK
     Route: 048

REACTIONS (3)
  - Neurotoxicity [Unknown]
  - Vestibular disorder [Unknown]
  - Balance disorder [Unknown]
